FAERS Safety Report 14832855 (Version 1)
Quarter: 2018Q2

REPORT INFORMATION
  Report Type: Spontaneous
  Country: US (occurrence: US)
  Receive Date: 20180409
  Receipt Date: 20180409
  Transmission Date: 20180711
  Serious: Yes (Other)
  Sender: FDA-Public Use
  Company Number: None

PATIENT
  Age: 67 Year
  Sex: Male

DRUGS (3)
  1. DORZOLAMIDE HYDROCHLORIDE AND TIMOLOL MALEATE [Suspect]
     Active Substance: DORZOLAMIDE HYDROCHLORIDE\TIMOLOL MALEATE
     Indication: GLAUCOMA
     Dosage: ?          QUANTITY:10 ML MILLILITRE(S);?
     Route: 047
     Dates: start: 20180406, end: 20180409
  2. TRAVATAN [Concomitant]
     Active Substance: TRAVOPROST
  3. ALPHAGRAN [Concomitant]

REACTIONS (2)
  - Eye irritation [None]
  - Lacrimation increased [None]

NARRATIVE: CASE EVENT DATE: 20180406
